FAERS Safety Report 11375741 (Version 1)
Quarter: 2015Q3

REPORT INFORMATION
  Report Type: Spontaneous
  Country: FR (occurrence: FR)
  Receive Date: 20150813
  Receipt Date: 20150813
  Transmission Date: 20151125
  Serious: Yes (Hospitalization, Other)
  Sender: FDA-Public Use
  Company Number: FR-GLAXOSMITHKLINE INC.-FR2015GSK110835

PATIENT
  Age: 40 Year
  Sex: Female

DRUGS (5)
  1. EUPANTOL [Concomitant]
     Active Substance: PANTOPRAZOLE SODIUM
  2. CYMBALTA [Suspect]
     Active Substance: DULOXETINE HYDROCHLORIDE
     Indication: PRODUCT USED FOR UNKNOWN INDICATION
     Dosage: 60 MG, 1D
     Route: 048
     Dates: start: 201309, end: 20141003
  3. WELLVONE [Suspect]
     Active Substance: ATOVAQUONE
     Indication: PRODUCT USED FOR UNKNOWN INDICATION
     Dosage: UNK
     Route: 065
     Dates: start: 201404, end: 20140912
  4. ENDOXAN [Concomitant]
     Active Substance: CYCLOPHOSPHAMIDE
     Dosage: UNK
     Dates: end: 201407
  5. CORTANCYL [Concomitant]
     Active Substance: PREDNISONE

REACTIONS (3)
  - Alanine aminotransferase increased [Recovered/Resolved]
  - Hepatocellular injury [Recovered/Resolved]
  - Aspartate aminotransferase increased [Recovered/Resolved]

NARRATIVE: CASE EVENT DATE: 20140911
